FAERS Safety Report 14304505 (Version 1)
Quarter: 2017Q4

REPORT INFORMATION
  Report Type: Report from Study
  Country: JP (occurrence: JP)
  Receive Date: 20171219
  Receipt Date: 20171219
  Transmission Date: 20180321
  Serious: Yes (Other)
  Sender: FDA-Public Use
  Company Number: JP-OTSUKA-000174

PATIENT

DRUGS (17)
  1. FLUNITRAZEPAM [Concomitant]
     Active Substance: FLUNITRAZEPAM
     Dosage: UNK
     Dates: start: 20070104, end: 20070724
  2. AKINETON [Concomitant]
     Active Substance: BIPERIDEN HYDROCHLORIDE
     Dosage: 6 MG, QD
     Route: 048
     Dates: start: 20070725
  3. ZYPREXA [Concomitant]
     Active Substance: OLANZAPINE
     Indication: SCHIZOPHRENIA
     Dosage: 20 MG, QD
     Route: 048
     Dates: start: 20070104, end: 20070724
  4. PURSENNID [Concomitant]
     Active Substance: SENNOSIDES A AND B
     Dosage: 4 DF, DAILY DOSE
     Route: 048
     Dates: start: 20070104, end: 20070625
  5. SENNA [Concomitant]
     Active Substance: SENNA LEAF\SENNOSIDES\SENNOSIDES A AND B
     Dosage: UNK
     Dates: start: 20070104, end: 20070625
  6. TRIAZOLAM. [Concomitant]
     Active Substance: TRIAZOLAM
     Dosage: UNK
     Dates: start: 20070104, end: 20070724
  7. OLANZAPINE. [Concomitant]
     Active Substance: OLANZAPINE
     Dosage: UNK
     Dates: start: 20070104, end: 20070724
  8. ARIPIPRAZOLE. [Suspect]
     Active Substance: ARIPIPRAZOLE
     Indication: SCHIZOPHRENIA
     Dosage: 6 MG, QD
     Route: 048
     Dates: start: 20070531, end: 20070724
  9. ROHYPNOL [Concomitant]
     Active Substance: FLUNITRAZEPAM
     Indication: SCHIZOPHRENIA
     Dosage: 1 MG, QD
     Route: 048
     Dates: start: 20070104, end: 20070724
  10. SERENACE [Concomitant]
     Active Substance: HALOPERIDOL
     Dosage: 9 MG, QD
     Route: 048
     Dates: start: 20070725
  11. HALCION [Concomitant]
     Active Substance: TRIAZOLAM
     Indication: SCHIZOPHRENIA
     Dosage: 0.25 MG, QD
     Route: 048
     Dates: start: 20070104, end: 20070724
  12. AKINETON [Concomitant]
     Active Substance: BIPERIDEN HYDROCHLORIDE
     Dosage: 3 MG, QD
     Route: 048
     Dates: start: 20070104, end: 20070724
  13. SEPAZON [Concomitant]
     Active Substance: CLOXAZOLAM
     Dosage: 6 MG, QD
     Route: 048
     Dates: start: 20071106
  14. SENNARIDE [Concomitant]
     Active Substance: SENNOSIDES A AND B
     Dosage: 4 DF, DAILY DOSE
     Route: 048
     Dates: start: 20070626
  15. MAGNESIUM OXIDE. [Concomitant]
     Active Substance: MAGNESIUM OXIDE
     Dosage: 3 G, DAILY DOSE
     Route: 048
     Dates: start: 20070104
  16. SEPAZON [Concomitant]
     Active Substance: CLOXAZOLAM
     Indication: SCHIZOPHRENIA
     Dosage: 3 MG, QD
     Route: 048
     Dates: start: 20070104, end: 20070724
  17. SERENACE [Concomitant]
     Active Substance: HALOPERIDOL
     Indication: SCHIZOPHRENIA
     Dosage: 3 MG, QD
     Route: 048
     Dates: start: 20070724

REACTIONS (2)
  - Delusion [Recovered/Resolved]
  - Hallucination [Recovered/Resolved]

NARRATIVE: CASE EVENT DATE: 20070611
